FAERS Safety Report 5108217-8 (Version None)
Quarter: 2006Q3

REPORT INFORMATION
  Report Type: 
  Country: None (occurrence: None)
  Receive Date: 20060915
  Receipt Date: 20060830
  Transmission Date: 20061208
  Serious: Yes (Other)
  Sender: FDA-Public Use
  Company Number: WAES 0609USA00331

PATIENT
  Sex: 0

DRUGS (3)
  1. DECADRON [Suspect]
     Indication: MULTIPLE MYELOMA
     Dosage: 40 MG/PO
     Route: 048
  2. ASPIRIN [Concomitant]
  3. LENALIDOMIDE [Concomitant]

REACTIONS (1)
  - PULMONARY EMBOLISM [None]
